FAERS Safety Report 8507332 (Version 2)
Quarter: 2012Q4

REPORT INFORMATION
  Report Type: 
  Country: US (occurrence: US)
  Receive Date: 20120412
  Receipt Date: 20121221
  Transmission Date: 20130627
  Serious: No
  Sender: FDA-Public Use
  Company Number: US-ASTRAZENECA-2012SE04046

PATIENT
  Age: 62 Year
  Sex: Female

DRUGS (3)
  1. NEXIUM [Suspect]
     Route: 048
  2. TOPROL XL [Suspect]
     Route: 048
  3. ACCOLATE [Suspect]
     Route: 048

REACTIONS (8)
  - Blood glucose fluctuation [Unknown]
  - Cardiac disorder [Unknown]
  - Diabetes mellitus [Unknown]
  - Hypertension [Unknown]
  - Lung disorder [Unknown]
  - Memory impairment [Unknown]
  - Palpitations [Unknown]
  - Malaise [Unknown]
